FAERS Safety Report 22961507 (Version 2)
Quarter: 2024Q3

REPORT INFORMATION
  Report Type: Spontaneous
  Country: FR (occurrence: FR)
  Receive Date: 20230920
  Receipt Date: 20240730
  Transmission Date: 20241017
  Serious: Yes (Death, Other)
  Sender: MYLAN
  Company Number: FR-MYLANLABS-2023M1099792

PATIENT
  Age: 54 Year
  Sex: Female

DRUGS (13)
  1. LYRICA [Suspect]
     Active Substance: PREGABALIN
     Indication: Depression
     Dosage: 100 MILLIGRAM, BID
     Route: 048
     Dates: start: 20201212, end: 20201212
  2. LYRICA [Suspect]
     Active Substance: PREGABALIN
     Indication: Depression
     Dosage: UNK
     Route: 048
     Dates: start: 20201212
  3. MIRTAZAPINE [Suspect]
     Active Substance: MIRTAZAPINE
     Indication: Depression
     Dosage: UNK
     Route: 065
     Dates: start: 20201212, end: 20201212
  4. PAROXETINE MESYLATE [Suspect]
     Active Substance: PAROXETINE MESYLATE
     Indication: Depression
     Dosage: UNK
     Route: 048
     Dates: start: 20201212, end: 20201212
  5. QUETIAPINE FUMARATE [Suspect]
     Active Substance: QUETIAPINE FUMARATE
     Indication: Depression
     Dosage: UNK
     Route: 048
     Dates: start: 20201212, end: 20201212
  6. CLOBAZAM [Suspect]
     Active Substance: CLOBAZAM
     Indication: Depression
     Dosage: UNK
     Route: 048
     Dates: start: 20201212, end: 20201212
  7. ABILIFY [Suspect]
     Active Substance: ARIPIPRAZOLE
     Indication: Depression
     Dosage: UNK
     Route: 048
     Dates: start: 20201212, end: 20201212
  8. PERICIAZINE [Suspect]
     Active Substance: PERICIAZINE
     Indication: Product used for unknown indication
     Dosage: 125 MILLIGRAM, FREQUENCY: 1/2 TAB IN THE MORNING - 1/2 TAB AT MIDDAY AND 4 TAB IN THE EVENING
     Route: 048
     Dates: start: 20201212
  9. LEVOMEPROMAZINE [Concomitant]
     Active Substance: LEVOMEPROMAZINE
     Indication: Product used for unknown indication
     Dosage: UNK
     Route: 048
     Dates: start: 202001, end: 20201211
  10. AMITRIPTYLINE HYDROCHLORIDE [Concomitant]
     Active Substance: AMITRIPTYLINE HYDROCHLORIDE
     Indication: Product used for unknown indication
     Dosage: UNK
     Route: 048
     Dates: start: 202001, end: 20201211
  11. BACLOFEN [Concomitant]
     Active Substance: BACLOFEN
     Indication: Alcohol withdrawal syndrome
     Dosage: UNK
     Route: 048
     Dates: start: 202001, end: 20201211
  12. NORDAZEPAM [Concomitant]
     Active Substance: NORDAZEPAM
     Indication: Product used for unknown indication
     Dosage: UNK
     Route: 048
     Dates: start: 202001, end: 20201211
  13. QUETIAPINE FUMARATE [Concomitant]
     Active Substance: QUETIAPINE FUMARATE
     Indication: Product used for unknown indication
     Dosage: UNK
     Route: 048
     Dates: start: 202001, end: 20201211

REACTIONS (8)
  - Cardiovascular disorder [Fatal]
  - Epistaxis [Fatal]
  - Toxicity to various agents [Fatal]
  - Acute cardiac event [Fatal]
  - Product prescribing error [Fatal]
  - Drug dispensed to wrong patient [Fatal]
  - Wrong patient received product [Fatal]
  - Prescription drug used without a prescription [Fatal]

NARRATIVE: CASE EVENT DATE: 20201201
